FAERS Safety Report 4846309-9 (Version None)
Quarter: 2005Q4

REPORT INFORMATION
  Report Type: 
  Country: None (occurrence: None)
  Receive Date: 20051130
  Receipt Date: 20051116
  Transmission Date: 20060501
  Serious: Yes (Death, Life-Threatening, Hospitalization)
  Sender: FDA-Public Use
  Company Number: S03-341-002

PATIENT
  Age: 65 Year
  Sex: Male
  Weight: 67 kg

DRUGS (1)
  1. VELCADE [Suspect]
     Indication: MULTIPLE MYELOMA
     Dosage: 2.30 MG, IV BOLUS
     Route: 040
     Dates: start: 20020903, end: 20021226

REACTIONS (17)
  - ASTHENIA [None]
  - BLOOD POTASSIUM INCREASED [None]
  - BLOOD PRESSURE INCREASED [None]
  - CARDIO-RESPIRATORY ARREST [None]
  - DEHYDRATION [None]
  - DIALYSIS [None]
  - HAEMATOCRIT DECREASED [None]
  - ILEUS [None]
  - KYPHOSIS [None]
  - LETHARGY [None]
  - LOSS OF CONSCIOUSNESS [None]
  - MENTAL IMPAIRMENT [None]
  - NAUSEA [None]
  - ORAL INTAKE REDUCED [None]
  - PLATELET COUNT DECREASED [None]
  - RENAL FAILURE ACUTE [None]
  - WHITE BLOOD CELL COUNT DECREASED [None]
